FAERS Safety Report 8760843 (Version 1)
Quarter: 2012Q4

REPORT INFORMATION
  Report Type: Report from Study
  Country: US (occurrence: US)
  Receive Date: 20120830
  Receipt Date: 20120830
  Transmission Date: 20130627
  Serious: Yes (Hospitalization, Other)
  Sender: FDA-Public Use
  Company Number: US-ABBOTT-12P-163-0970911-00

PATIENT
  Age: 57 Year
  Sex: Female

DRUGS (8)
  1. HUMIRA 40 MG/0.8 ML PEN [Suspect]
     Indication: CROHN^S DISEASE
     Dates: start: 201012, end: 201104
  2. HUMIRA 40 MG/0.8 ML PEN [Suspect]
     Dates: start: 201207
  3. UNSPECIFIED INGREDIENT [Suspect]
     Indication: PRODUCT USED FOR UNKNOWN INDICATION
     Route: 008
  4. METHOTREXATE [Concomitant]
     Indication: RHEUMATOID ARTHRITIS
     Dosage: Weekly
  5. VITAMIN B-12 [Concomitant]
     Indication: VITAMIN SUPPLEMENTATION
  6. MAGNESIUM [Concomitant]
     Indication: MINERAL SUPPLEMENTATION
  7. POTASSIUM [Concomitant]
     Indication: MINERAL SUPPLEMENTATION
  8. ZEGERID [Concomitant]
     Indication: GASTROOESOPHAGEAL REFLUX DISEASE

REACTIONS (14)
  - Renal impairment [Unknown]
  - Fungal oesophagitis [Recovering/Resolving]
  - Dyspnoea [Unknown]
  - Crohn^s disease [Unknown]
  - Hip arthroplasty [Unknown]
  - Dyspnoea [Unknown]
  - Hospitalisation [Unknown]
  - Carbon dioxide abnormal [Unknown]
  - Acidosis [Unknown]
  - Blood magnesium decreased [Unknown]
  - Blood potassium decreased [Unknown]
  - Renal tubular acidosis [Unknown]
  - Crohn^s disease [Unknown]
  - Device malfunction [Unknown]
